FAERS Safety Report 15008095 (Version 2)
Quarter: 2018Q3

REPORT INFORMATION
  Report Type: Spontaneous
  Country: US (occurrence: US)
  Receive Date: 20180613
  Receipt Date: 20180927
  Transmission Date: 20181010
  Serious: Yes (Death, Hospitalization, Other)
  Sender: FDA-Public Use
  Company Number: US-ENDO PHARMACEUTICALS INC-2018-039710

PATIENT
  Age: 82 Year
  Sex: Male
  Weight: 71.2 kg

DRUGS (4)
  1. DEPO TESTOSTERONE [Suspect]
     Active Substance: TESTOSTERONE
     Indication: ANDROGEN REPLACEMENT THERAPY
     Dosage: UNK UNKNOWN, UNKNOWN (TWICE A MONTH)
     Route: 065
     Dates: start: 200901, end: 201010
  2. FOLIC ACID. [Concomitant]
     Active Substance: FOLIC ACID
     Indication: SUPPLEMENTATION THERAPY
     Dosage: UNK UNKNOWN, UNKNOWN
     Route: 065
  3. TESTIM [Suspect]
     Active Substance: TESTOSTERONE
     Indication: ANDROGEN REPLACEMENT THERAPY
     Dosage: UNK UNKNOWN, DAILY
     Route: 065
     Dates: start: 200803, end: 201105
  4. LEVOTHYROXINE. [Concomitant]
     Active Substance: LEVOTHYROXINE
     Indication: THYROID DISORDER
     Dosage: UNK UNKNOWN, UNKNOWN
     Route: 065

REACTIONS (16)
  - Failure to thrive [Fatal]
  - Chest discomfort [Unknown]
  - Thrombosis [Unknown]
  - Respiratory arrest [Fatal]
  - Coronary artery disease [Fatal]
  - Head injury [Unknown]
  - Bronchitis [Unknown]
  - Ischaemic cardiomyopathy [Fatal]
  - Dyspnoea [Unknown]
  - Cardiac failure congestive [Unknown]
  - Malnutrition [Fatal]
  - Hyperlipidaemia [Unknown]
  - Thrombosis [Unknown]
  - Cardiovascular disorder [Unknown]
  - Dysphagia [Unknown]
  - Prostate cancer [Unknown]

NARRATIVE: CASE EVENT DATE: 200912
